FAERS Safety Report 4337161-9 (Version None)
Quarter: 2004Q1

REPORT INFORMATION
  Report Type: 
  Country: None (occurrence: None)
  Receive Date: 20040329
  Receipt Date: 20040217
  Transmission Date: 20041129
  Serious: No
  Sender: FDA-Public Use
  Company Number: USA040259630

PATIENT
  Age: 46 Year
  Sex: Male
  Weight: 68 kg

DRUGS (4)
  1. STRATTERA [Suspect]
     Dosage: 80 MG/DAY
     Dates: start: 20031201
  2. XANAX [Concomitant]
  3. TYLENOL [Concomitant]
  4. ACTIFED [Concomitant]

REACTIONS (6)
  - ABNORMAL BEHAVIOUR [None]
  - DIZZINESS [None]
  - DRY MOUTH [None]
  - HEADACHE [None]
  - INSOMNIA [None]
  - WEIGHT DECREASED [None]
